FAERS Safety Report 7187263-7 (Version None)
Quarter: 2010Q4

REPORT INFORMATION
  Report Type: 
  Country: None (occurrence: None)
  Receive Date: 20101222
  Receipt Date: 20101217
  Transmission Date: 20110411
  Serious: Yes (Other)
  Sender: FDA-Public Use
  Company Number: US-RB-019753-09

PATIENT
  Age: 63 Year
  Sex: Female

DRUGS (1)
  1. SUBOXONE [Suspect]
     Indication: PRODUCT USED FOR UNKNOWN INDICATION
     Dosage: UNKNOWN DOSING INFORMATION
     Route: 065

REACTIONS (11)
  - AGITATION [None]
  - BONE EROSION [None]
  - CEREBROVASCULAR ACCIDENT [None]
  - FATIGUE [None]
  - GINGIVAL EROSION [None]
  - GINGIVAL PAIN [None]
  - INSOMNIA [None]
  - INTENTIONAL DRUG MISUSE [None]
  - ORAL MUCOSAL DISCOLOURATION [None]
  - SOMNOLENCE [None]
  - TONGUE DISORDER [None]
